FAERS Safety Report 7629149-7 (Version None)
Quarter: 2011Q3

REPORT INFORMATION
  Report Type: 
  Country: None (occurrence: None)
  Receive Date: 20110722
  Receipt Date: 20110708
  Transmission Date: 20111222
  Serious: Yes (Hospitalization, Other)
  Sender: FDA-Public Use
  Company Number: PHHY2011DE63669

PATIENT
  Age: 61 Year
  Sex: Female

DRUGS (4)
  1. DIAZEPAM [Concomitant]
  2. VALPROIC ACID [Suspect]
  3. CLOZAPINE [Suspect]
  4. MELPERONE [Concomitant]

REACTIONS (7)
  - DISORIENTATION [None]
  - RESTLESSNESS [None]
  - SALIVARY HYPERSECRETION [None]
  - ENCEPHALOPATHY [None]
  - DELIRIUM [None]
  - DYSARTHRIA [None]
  - ANTIPSYCHOTIC DRUG LEVEL ABOVE THERAPEUTIC [None]
